FAERS Safety Report 6563764-7 (Version None)
Quarter: 2010Q1

REPORT INFORMATION
  Report Type: 
  Country: None (occurrence: None)
  Receive Date: 20100130
  Receipt Date: 20091218
  Transmission Date: 20100710
  Serious: No
  Sender: FDA-Public Use
  Company Number: US-ABBOTT-09P-163-0616242-00

PATIENT
  Sex: Female

DRUGS (8)
  1. HUMIRA [Suspect]
     Indication: CROHN'S DISEASE
     Dates: end: 20091203
  2. HUMIRA [Suspect]
     Route: 058
  3. PENTASA [Concomitant]
     Indication: CROHN'S DISEASE
  4. ZANTAC [Concomitant]
     Indication: CROHN'S DISEASE
  5. CARAFATE [Concomitant]
     Indication: DRUG USE FOR UNKNOWN INDICATION
  6. ZEGERID [Concomitant]
     Indication: DRUG USE FOR UNKNOWN INDICATION
  7. VITAMIN B-12 [Concomitant]
     Indication: DRUG USE FOR UNKNOWN INDICATION
  8. FOSAMAX [Concomitant]
     Indication: DRUG USE FOR UNKNOWN INDICATION

REACTIONS (4)
  - ARTHRALGIA [None]
  - MESENTERITIS [None]
  - RHEUMATOID ARTHRITIS [None]
  - SCAN ABDOMEN ABNORMAL [None]
